FAERS Safety Report 11431399 (Version 3)
Quarter: 2015Q3

REPORT INFORMATION
  Report Type: Spontaneous
  Country: JP (occurrence: JP)
  Receive Date: 20150828
  Receipt Date: 20150918
  Transmission Date: 20151125
  Serious: Yes (Death, Disabling, Other)
  Sender: FDA-Public Use
  Company Number: PHJP2015JP014483

PATIENT
  Age: 77 Year
  Sex: Male
  Weight: 58 kg

DRUGS (20)
  1. METHYCOBAL [Concomitant]
     Active Substance: METHYLCOBALAMIN
     Indication: MUSCULAR WEAKNESS
     Dosage: 500 UG, TID
     Route: 048
     Dates: start: 20110728
  2. FLIVAS [Concomitant]
     Active Substance: NAFTOPIDIL
     Indication: DYSURIA
     Dosage: 25 MG, BID
     Route: 048
     Dates: start: 20110728
  3. VOLTAREN [Concomitant]
     Active Substance: DICLOFENAC SODIUM
     Indication: PAIN
     Dosage: UNK, WHEN PAINFUL
     Route: 054
     Dates: start: 20110729
  4. TEGRETOL [Suspect]
     Active Substance: CARBAMAZEPINE
     Indication: MANIA
  5. MUCOSTA [Concomitant]
     Active Substance: REBAMIPIDE
     Indication: PAIN
     Dosage: 100 MG, TID
     Route: 048
     Dates: start: 20110728
  6. LYRICA [Concomitant]
     Active Substance: PREGABALIN
     Indication: PAIN
  7. LOXONIN [Concomitant]
     Active Substance: LOXOPROFEN SODIUM
     Indication: ANALGESIC THERAPY
     Dosage: 60 MG, TID
     Route: 048
     Dates: start: 20110728
  8. HIRUDOID [Concomitant]
     Active Substance: GLYCOSAMINOGLYCANS
     Indication: DRY SKIN
     Dosage: PROPER DOSE, ONCE OR TWICE
     Route: 065
     Dates: start: 20110728
  9. BUP-4 [Concomitant]
     Active Substance: PROPIVERINE
     Indication: MICTURITION URGENCY
     Dosage: 10 MG, BID
     Route: 048
     Dates: start: 20110728
  10. LIPITOR [Concomitant]
     Active Substance: ATORVASTATIN CALCIUM
     Indication: BLOOD CHOLESTEROL DECREASED
     Dosage: 5 MG, QD
     Route: 048
     Dates: start: 20110728
  11. MYSLEE [Concomitant]
     Active Substance: ZOLPIDEM TARTRATE
     Indication: SLEEP DISORDER
     Dosage: 5 MG, QD
     Route: 048
     Dates: start: 20110728
  12. LYRICA [Concomitant]
     Active Substance: PREGABALIN
     Indication: MENTAL DISORDER
     Dosage: 75 MG, BID
     Route: 048
     Dates: start: 20110805, end: 20110823
  13. MOHRUS [Concomitant]
     Active Substance: KETOPROFEN
     Indication: ANTIINFLAMMATORY THERAPY
  14. POSTERISAN [Concomitant]
     Active Substance: LIDOCAINE
     Indication: HAEMORRHOIDAL HAEMORRHAGE
     Dosage: UP TO 2DF IN A DAY, UNTIL TWICE IN A DAY
     Route: 054
     Dates: start: 20110823, end: 20110825
  15. TEGRETOL [Suspect]
     Active Substance: CARBAMAZEPINE
     Indication: ANALGESIC THERAPY
     Dosage: 600 MG, TID (THREE TABLETS THREE TIMES DAILY)
     Route: 048
     Dates: start: 20110823, end: 20110825
  16. AMLODIPINE [Concomitant]
     Active Substance: AMLODIPINE BESYLATE
     Indication: PROPHYLAXIS
     Dosage: 2.5 MG, QD
     Route: 048
     Dates: start: 20110728
  17. ALLOPURINOL. [Concomitant]
     Active Substance: ALLOPURINOL
     Indication: BLOOD URIC ACID DECREASED
     Dosage: 100 MG, QD
     Route: 048
     Dates: start: 20110728
  18. METHYCOBAL [Concomitant]
     Active Substance: METHYLCOBALAMIN
     Indication: PAIN
  19. METHYCOBAL [Concomitant]
     Active Substance: METHYLCOBALAMIN
     Indication: PRURITUS
  20. MOHRUS [Concomitant]
     Active Substance: KETOPROFEN
     Indication: ANALGESIC THERAPY
     Dosage: PROPERLY, WHEN PAINFUL
     Route: 065
     Dates: start: 20110814, end: 20110825

REACTIONS (21)
  - Cold sweat [Unknown]
  - Delirium [Fatal]
  - Carotid pulse decreased [Fatal]
  - Wheezing [Unknown]
  - Brain contusion [Fatal]
  - Mydriasis [Unknown]
  - Skull fracture [Fatal]
  - Respiratory arrest [Unknown]
  - Depressed level of consciousness [Fatal]
  - Cyanosis [Unknown]
  - Haemorrhage intracranial [Fatal]
  - Ear haemorrhage [Fatal]
  - Traumatic shock [Fatal]
  - Fall [Fatal]
  - Skull fractured base [Fatal]
  - Pallor [Fatal]
  - Pneumothorax traumatic [Unknown]
  - General physical health deterioration [Unknown]
  - Cardiac arrest [Unknown]
  - Poriomania [Unknown]
  - Restlessness [Unknown]

NARRATIVE: CASE EVENT DATE: 20110825
